FAERS Safety Report 18839624 (Version 3)
Quarter: 2021Q1

REPORT INFORMATION
  Report Type: Report from Study
  Country: US (occurrence: US)
  Receive Date: 20210203
  Receipt Date: 20210319
  Transmission Date: 20210419
  Serious: Yes (Other)
  Sender: FDA-Public Use
  Company Number: US-JAZZ-2021-US-000154

PATIENT
  Sex: Male

DRUGS (3)
  1. ADDERALL [Concomitant]
     Active Substance: AMPHETAMINE ASPARTATE\AMPHETAMINE SULFATE\DEXTROAMPHETAMINE SACCHARATE\DEXTROAMPHETAMINE SULFATE
     Indication: PRODUCT USED FOR UNKNOWN INDICATION
  2. XYREM [Suspect]
     Active Substance: SODIUM OXYBATE
     Indication: NARCOLEPSY
     Dosage: 2.25 GRAM, BID
     Route: 048
     Dates: start: 202012, end: 20210104
  3. XYREM [Suspect]
     Active Substance: SODIUM OXYBATE
     Dosage: 3 GRAM, BID
     Route: 048
     Dates: start: 20210105, end: 20210110

REACTIONS (9)
  - Muscle spasms [Unknown]
  - Blood pressure increased [Not Recovered/Not Resolved]
  - Weight fluctuation [Unknown]
  - Peripheral swelling [Unknown]
  - Hyperhidrosis [Recovered/Resolved]
  - Myocardial infarction [Unknown]
  - Palpitations [Recovered/Resolved]
  - Paraesthesia [Unknown]
  - Drug titration error [Unknown]

NARRATIVE: CASE EVENT DATE: 2020
